FAERS Safety Report 13452628 (Version 24)
Quarter: 2018Q4

REPORT INFORMATION
  Report Type: Spontaneous
  Country: CA (occurrence: CA)
  Receive Date: 20170418
  Receipt Date: 20181106
  Transmission Date: 20190204
  Serious: Yes (Hospitalization, Disabling, Other)
  Sender: FDA-Public Use
  Company Number: CA-CELLTRION INC.-2017CA003811

PATIENT

DRUGS (10)
  1. INFLECTRA [Suspect]
     Active Substance: INFLIXIMAB-DYYB
     Indication: CROHN^S DISEASE
     Dosage: 5 MG/KG, CYCLIC (5MG/KG EVERY 8 WEEKS)
     Route: 042
     Dates: start: 20170306, end: 20170309
  2. PREDNISONE. [Concomitant]
     Active Substance: PREDNISONE
     Dosage: 500 MG, DAILY
     Route: 065
     Dates: start: 20170128
  3. INFLECTRA [Suspect]
     Active Substance: INFLIXIMAB-DYYB
     Dosage: 228 MG, CYCLIC (THEN EVERY 6 WEEKS)
     Route: 042
     Dates: start: 20180403
  4. ALYSENA [Concomitant]
     Dosage: 0.2 MG, UNK
     Route: 065
  5. ERTAPENEM. [Concomitant]
     Active Substance: ERTAPENEM SODIUM
     Dosage: 1 G, DAILY
     Route: 042
  6. INFLECTRA [Suspect]
     Active Substance: INFLIXIMAB-DYYB
     Dosage: 200 MG,CYCLIC  EVERY 8 WEEKS
     Route: 042
     Dates: start: 20170310, end: 20171003
  7. INFLECTRA [Suspect]
     Active Substance: INFLIXIMAB-DYYB
     Dosage: 228 MG, CYCLIC (THEN EVERY 4 WEEKS)
     Route: 042
     Dates: start: 20170310, end: 20180220
  8. IMURAN [Suspect]
     Active Substance: AZATHIOPRINE
     Indication: CROHN^S DISEASE
     Dosage: 75 MG, DAILY
     Route: 048
     Dates: start: 20170310, end: 2018
  9. INFLECTRA [Suspect]
     Active Substance: INFLIXIMAB-DYYB
     Dosage: 228 MG, CYCLIC (THEN EVERY 6 WEEKS)
     Route: 042
     Dates: start: 20180530, end: 20180530
  10. ALYSENA [Concomitant]
     Dosage: 25 MG, UNK
     Route: 065

REACTIONS (17)
  - Drug level increased [Not Recovered/Not Resolved]
  - Constipation [Unknown]
  - Alopecia [Not Recovered/Not Resolved]
  - Psoriasis [Not Recovered/Not Resolved]
  - Clostridium difficile infection [Recovered/Resolved with Sequelae]
  - Clostridium difficile colitis [Recovered/Resolved with Sequelae]
  - Urticaria [Not Recovered/Not Resolved]
  - Product use issue [Not Recovered/Not Resolved]
  - Weight increased [Not Recovered/Not Resolved]
  - Abscess [Recovered/Resolved]
  - Aphthous ulcer [Not Recovered/Not Resolved]
  - Pain [Not Recovered/Not Resolved]
  - Drug level above therapeutic [Unknown]
  - Heart rate irregular [Recovered/Resolved]
  - Rash [Not Recovered/Not Resolved]
  - Intestinal stenosis [Not Recovered/Not Resolved]
  - White blood cell count increased [Unknown]

NARRATIVE: CASE EVENT DATE: 2017
